FAERS Safety Report 10461257 (Version 2)
Quarter: 2014Q3

REPORT INFORMATION
  Report Type: Spontaneous
  Country: US (occurrence: US)
  Receive Date: 20140918
  Receipt Date: 20140918
  Transmission Date: 20150326
  Serious: Yes (Other)
  Sender: FDA-Public Use
  Company Number: PHHY2014US045321

PATIENT
  Sex: Female
  Weight: 50.79 kg

DRUGS (10)
  1. LIORESAL [Suspect]
     Active Substance: BACLOFEN
     Dosage: 90 UG, PER DAY
     Route: 037
  2. LIORESAL [Suspect]
     Active Substance: BACLOFEN
     Indication: MUSCLE SPASTICITY
     Dosage: 25 UG, DAILY
     Route: 037
  3. OXYCODONE [Suspect]
     Active Substance: OXYCODONE
     Dosage: UNK UKN, UNK
     Route: 048
  4. TEGRETOL [Suspect]
     Active Substance: CARBAMAZEPINE
     Dosage: UNK
     Route: 048
  5. PROPRANOLOL [Suspect]
     Active Substance: PROPRANOLOL\PROPRANOLOL HYDROCHLORIDE
     Dosage: UNK
     Route: 048
  6. AVONEX [Suspect]
     Active Substance: INTERFERON BETA-1A
     Dosage: UNK
     Route: 048
  7. LIORESAL [Suspect]
     Active Substance: BACLOFEN
     Dosage: 50 UG, DAILY
     Route: 037
  8. GABAPENTIN. [Suspect]
     Active Substance: GABAPENTIN
     Dosage: UNK UKN, UNK
     Route: 048
  9. SENNA [Suspect]
     Active Substance: SENNA LEAF\SENNOSIDES\SENNOSIDES A AND B
     Dosage: UNK UKN, UNK
     Route: 048
  10. BACLOFEN. [Suspect]
     Active Substance: BACLOFEN
     Dosage: UNK UKN, UNK
     Route: 048

REACTIONS (14)
  - Adverse drug reaction [Not Recovered/Not Resolved]
  - Disorientation [Not Recovered/Not Resolved]
  - Implant site extravasation [Not Recovered/Not Resolved]
  - Pseudomeningocele [Not Recovered/Not Resolved]
  - Pyrexia [Not Recovered/Not Resolved]
  - Muscle spasticity [Not Recovered/Not Resolved]
  - No therapeutic response [Not Recovered/Not Resolved]
  - Performance status decreased [Not Recovered/Not Resolved]
  - Hypoaesthesia [Not Recovered/Not Resolved]
  - Pain of skin [Not Recovered/Not Resolved]
  - Pain [Not Recovered/Not Resolved]
  - Implant site swelling [Not Recovered/Not Resolved]
  - Cerebrospinal fluid leakage [Not Recovered/Not Resolved]
  - Implant site warmth [Not Recovered/Not Resolved]
